FAERS Safety Report 24741173 (Version 1)
Quarter: 2024Q4

REPORT INFORMATION
  Report Type: Report from Study
  Country: EG (occurrence: EG)
  Receive Date: 20241217
  Receipt Date: 20241217
  Transmission Date: 20250115
  Serious: Yes (Death, Hospitalization)
  Sender: SANDOZ
  Company Number: EG-SANDOZ-SDZ2024EG102990

PATIENT
  Sex: Male

DRUGS (1)
  1. HYRIMOZ [Suspect]
     Active Substance: ADALIMUMAB-ADAZ
     Indication: Uveitis
     Dosage: 40 MG, Q2W (40 MG/14 DAYS) (PURCHASED ONLY 2 DOSE)
     Route: 058
     Dates: start: 20240803

REACTIONS (1)
  - Immune system disorder [Fatal]
